FAERS Safety Report 5805241-4 (Version None)
Quarter: 2008Q3

REPORT INFORMATION
  Report Type: 
  Country: None (occurrence: None)
  Receive Date: 20080703
  Receipt Date: 20080624
  Transmission Date: 20090109
  Serious: Yes (Death, Hospitalization)
  Sender: FDA-Public Use
  Company Number: WAES 0806USA08459

PATIENT
  Age: 61 Year
  Sex: Female

DRUGS (13)
  1. DECADRON [Suspect]
     Dosage: 8 MG/DAILY/PO
     Route: 048
  2. INFUSION (FORM) PANITUMUMAB 450 MG [Suspect]
     Indication: COLORECTAL CANCER
     Dosage: 1 WK ON/2 WKS
     Dates: start: 20070111, end: 20070222
  3. DRONABINOL [Concomitant]
  4. ENOXAPARIN SODIUM [Concomitant]
  5. FLUOROURACIL [Concomitant]
  6. FOLINIC ACID [Concomitant]
  7. HEPARIN [Concomitant]
  8. IRINOTECAN HCL [Concomitant]
  9. MORPHINE [Concomitant]
  10. OXYCODONE HCL [Concomitant]
  11. SENNA [Concomitant]
  12. SERTRALINE HYDROCHLORIDE [Concomitant]
  13. WARFARIN SODIUM [Concomitant]

REACTIONS (13)
  - ANOREXIA [None]
  - DISEASE PROGRESSION [None]
  - FAILURE TO THRIVE [None]
  - FATIGUE [None]
  - HAEMATOCRIT DECREASED [None]
  - HEART RATE INCREASED [None]
  - LETHARGY [None]
  - NEUTROPENIC SEPSIS [None]
  - OEDEMA PERIPHERAL [None]
  - RETROPERITONEAL HAEMATOMA [None]
  - SWELLING [None]
  - WHITE BLOOD CELL COUNT DECREASED [None]
  - WHITE BLOOD CELL COUNT INCREASED [None]
